FAERS Safety Report 24362247 (Version 6)
Quarter: 2025Q4

REPORT INFORMATION
  Report Type: Report from Study
  Country: IN (occurrence: IN)
  Receive Date: 20240925
  Receipt Date: 20251106
  Transmission Date: 20260117
  Serious: Yes (Other)
  Sender: NOVARTIS
  Company Number: IN-002147023-NVSC2024IN116152

PATIENT
  Sex: Female

DRUGS (4)
  1. RIBOCICLIB [Suspect]
     Active Substance: RIBOCICLIB
     Indication: Invasive lobular breast carcinoma
     Dosage: UNK
     Route: 065
     Dates: start: 20240306
  2. RIBOCICLIB [Suspect]
     Active Substance: RIBOCICLIB
     Indication: Hormone receptor positive HER2 negative breast cancer
     Dosage: UNK
     Route: 065
     Dates: start: 20240308
  3. RIBOCICLIB [Suspect]
     Active Substance: RIBOCICLIB
     Indication: Breast cancer metastatic
     Dosage: 600 MG, QD
     Route: 048
     Dates: start: 20240313
  4. LETROZOLE [Concomitant]
     Active Substance: LETROZOLE
     Indication: Product used for unknown indication
     Dosage: UNK
     Route: 065
     Dates: start: 20240306

REACTIONS (17)
  - Lower respiratory tract infection [Recovered/Resolved]
  - Cough [Recovered/Resolved]
  - Asthenia [Unknown]
  - Pyrexia [Unknown]
  - Fatigue [Unknown]
  - Cough [Unknown]
  - Pyrexia [Recovered/Resolved]
  - Asthenia [Recovered/Resolved]
  - Fatigue [Recovered/Resolved]
  - Blood creatinine increased [Recovered/Resolved]
  - Blood creatinine increased [Unknown]
  - Haemoglobin decreased [Unknown]
  - Arthralgia [Unknown]
  - White blood cell count abnormal [Unknown]
  - Neutrophil count abnormal [Unknown]
  - Platelet count abnormal [Unknown]
  - Blood uric acid abnormal [Unknown]

NARRATIVE: CASE EVENT DATE: 20240323
